FAERS Safety Report 8389871-4 (Version None)
Quarter: 2012Q2

REPORT INFORMATION
  Report Type: 
  Country: None (occurrence: None)
  Receive Date: 20120515
  Receipt Date: 20120507
  Transmission Date: 20120825
  Serious: Yes (Hospitalization)
  Sender: FDA-Public Use
  Company Number: 2008SP016394

PATIENT
  Age: 65 Year
  Sex: Female
  Weight: 74 kg

DRUGS (20)
  1. REBETOL [Suspect]
     Indication: HEPATITIS C
     Dosage: 1200 MG;QD;PO, 1000 MG;QD;PO, 800 MG;QD;PO, 600 MG;QD;PO, 400 MG;QD;PO
     Route: 048
     Dates: start: 20070210, end: 20070830
  2. REBETOL [Suspect]
     Indication: HEPATITIS C
     Dosage: 1200 MG;QD;PO, 1000 MG;QD;PO, 800 MG;QD;PO, 600 MG;QD;PO, 400 MG;QD;PO
     Route: 048
     Dates: start: 20061212, end: 20070209
  3. REBETOL [Suspect]
     Indication: HEPATITIS C
     Dosage: 1200 MG;QD;PO, 1000 MG;QD;PO, 800 MG;QD;PO, 600 MG;QD;PO, 400 MG;QD;PO
     Route: 048
     Dates: start: 20080313, end: 20080807
  4. REBETOL [Suspect]
     Indication: HEPATITIS C
     Dosage: 1200 MG;QD;PO, 1000 MG;QD;PO, 800 MG;QD;PO, 600 MG;QD;PO, 400 MG;QD;PO
     Route: 048
     Dates: start: 20080808, end: 20090428
  5. REBETOL [Suspect]
     Indication: HEPATITIS C
     Dosage: 1200 MG;QD;PO, 1000 MG;QD;PO, 800 MG;QD;PO, 600 MG;QD;PO, 400 MG;QD;PO
     Route: 048
     Dates: start: 20070831, end: 20080312
  6. XANAX [Concomitant]
  7. ZITHROMAX [Concomitant]
  8. ROCEPHIN [Concomitant]
  9. RABEPRAZOLE SODIUM [Concomitant]
  10. BECLOMETHASONE DIPROPIONATE [Concomitant]
  11. CIPROFLOXACIN HYDROCHLORIDE [Concomitant]
  12. BONIVA [Concomitant]
  13. FURADANTIN [Concomitant]
  14. COUMADIN [Concomitant]
  15. VIRAFERONPEG [Suspect]
     Indication: HEPATITIS C
     Dosage: 45 MCG;QW;SC, 40 MCG;QW, 35 MCG;QW, 30 MCG;QW, 30 MCG;QW
     Route: 058
     Dates: start: 20080319, end: 20080808
  16. VIRAFERONPEG [Suspect]
     Indication: HEPATITIS C
     Dosage: 45 MCG;QW;SC, 40 MCG;QW, 35 MCG;QW, 30 MCG;QW, 30 MCG;QW
     Route: 058
     Dates: start: 20061212, end: 20070206
  17. VIRAFERONPEG [Suspect]
     Indication: HEPATITIS C
     Dosage: 45 MCG;QW;SC, 40 MCG;QW, 35 MCG;QW, 30 MCG;QW, 30 MCG;QW
     Route: 058
     Dates: start: 20080809, end: 20090428
  18. VIRAFERONPEG [Suspect]
     Indication: HEPATITIS C
     Dosage: 45 MCG;QW;SC, 40 MCG;QW, 35 MCG;QW, 30 MCG;QW, 30 MCG;QW
     Route: 058
     Dates: start: 20070904, end: 20080311
  19. VIRAFERONPEG [Suspect]
     Indication: HEPATITIS C
     Dosage: 45 MCG;QW;SC, 40 MCG;QW, 35 MCG;QW, 30 MCG;QW, 30 MCG;QW
     Route: 058
     Dates: start: 20070220, end: 20070821
  20. INOHEP [Concomitant]

REACTIONS (2)
  - PULMONARY EMBOLISM [None]
  - ASTHENIA [None]
